FAERS Safety Report 21598540 (Version 1)
Quarter: 2022Q4

REPORT INFORMATION
  Report Type: Spontaneous
  Country: DE (occurrence: DE)
  Receive Date: 20221115
  Receipt Date: 20221115
  Transmission Date: 20230113
  Serious: Yes (Life-Threatening, Hospitalization)
  Sender: FDA-Public Use
  Company Number: DE-ADRED-08301-01

PATIENT
  Age: 51 Year
  Sex: Male

DRUGS (12)
  1. QUETIAPINE [Suspect]
     Active Substance: QUETIAPINE
     Indication: Product used for unknown indication
     Dosage: 100 MILLIGRAM, 100 MG, 0-0-2-0, TABLET
     Route: 048
  2. QUETIAPINE [Suspect]
     Active Substance: QUETIAPINE
     Dosage: 200 MILLIGRAM,200 MILLIGRAM, ~200 MG, 0-0-1-0, SUSTAINED RELEAS
     Route: 048
  3. LAMOTRIGINE [Suspect]
     Active Substance: LAMOTRIGINE
     Indication: Product used for unknown indication
     Dosage: 150 MILLIGRAM, 150 MG, 1-0-0-1, TABLET
     Route: 048
  4. ESCITALOPRAM [Suspect]
     Active Substance: ESCITALOPRAM OXALATE
     Indication: Product used for unknown indication
     Dosage: 20 MILLIGRAM, 20 MG, 1-0-0-0, TABLET
     Route: 048
  5. DOXEPIN [Suspect]
     Active Substance: DOXEPIN
     Indication: Product used for unknown indication
     Dosage: 50 MILLIGRAM, 50 MG, 0-0-0-2, TABLET
     Route: 048
  6. SULFAMETHOXAZOLE\TRIMETHOPRIM [Suspect]
     Active Substance: SULFAMETHOXAZOLE\TRIMETHOPRIM
     Indication: Product used for unknown indication
     Dosage: 800|160 MG, , BY REGIMEN
     Route: 048
  7. DESMOPRESSIN [Suspect]
     Active Substance: DESMOPRESSIN
     Indication: Product used for unknown indication
     Dosage: 0.009 MILLIGRAM, 0.009 MG, 0-0-2-0, NASAL SPRAY
     Route: 045
  8. ATORVASTATIN [Concomitant]
     Active Substance: ATORVASTATIN
     Dosage: 10 MILLIGRAM, 10 MG, 0-0-1-0, TABLET
     Route: 048
  9. PANTOPRAZOLE SODIUM [Concomitant]
     Active Substance: PANTOPRAZOLE SODIUM
     Dosage: 40 MILLIGRAM,40 MG, 0-0-1-0, SUSTAINED RELEASETABLET
     Route: 048
  10. LEVETIRACETAM [Concomitant]
     Active Substance: LEVETIRACETAM
     Dosage: 1500 MILLIGRAM, 1500 MG, 1-0-0-1, TABLET
     Route: 048
  11. PANCREATIN [Concomitant]
     Active Substance: PANCRELIPASE
     Dosage: 40000 INTERNATIONAL UNIT, 40000 IE, 0-0-1-0, CAPS
     Route: 048
  12. BISOPROLOL [Concomitant]
     Active Substance: BISOPROLOL
     Dosage: 5 MILLIGRAM, 5 MG, 0.5-0-0.5-0, TABLET
     Route: 048

REACTIONS (5)
  - Pollakiuria [Unknown]
  - Urinary tract infection [Unknown]
  - Urinary retention [Unknown]
  - Hyponatraemia [Unknown]
  - Product prescribing error [Unknown]
